FAERS Safety Report 8267877-3 (Version None)
Quarter: 2012Q2

REPORT INFORMATION
  Report Type: 
  Country: None (occurrence: None)
  Receive Date: 20120409
  Receipt Date: 20120330
  Transmission Date: 20120825
  Serious: Yes (Other)
  Sender: FDA-Public Use
  Company Number: US-BRISTOL-MYERS SQUIBB COMPANY-16457616

PATIENT
  Age: 76 Year
  Sex: Male

DRUGS (1)
  1. YERVOY [Suspect]
     Dosage: 1DF= SECOND INF 24FEB12

REACTIONS (3)
  - VOCAL CORD PARALYSIS [None]
  - INFLUENZA LIKE ILLNESS [None]
  - DYSPHAGIA [None]
